FAERS Safety Report 4301697-7 (Version None)
Quarter: 2004Q1

REPORT INFORMATION
  Report Type: 
  Country: None (occurrence: None)
  Receive Date: 20040218
  Receipt Date: 20031112
  Transmission Date: 20041129
  Serious: Yes (Other)
  Sender: FDA-Public Use
  Company Number: 2003-11-0911

PATIENT
  Sex: Male

DRUGS (1)
  1. PEG-INTRON [Suspect]
     Route: 058

REACTIONS (2)
  - HYPERTHYROIDISM [None]
  - PNEUMONIA [None]
